FAERS Safety Report 18243003 (Version 3)
Quarter: 2021Q4

REPORT INFORMATION
  Report Type: Spontaneous
  Country: CH (occurrence: CH)
  Receive Date: 20200908
  Receipt Date: 20211223
  Transmission Date: 20220303
  Serious: Yes (Death)
  Sender: FDA-Public Use
  Company Number: CH-PFIZER INC-2020345751

PATIENT
  Age: 15 Year
  Sex: Female

DRUGS (2)
  1. XANAX [Interacting]
     Active Substance: ALPRAZOLAM
     Dosage: UNK
  2. MORPHINE [Interacting]
     Active Substance: MORPHINE
     Dosage: UNK

REACTIONS (4)
  - Overdose [Fatal]
  - Respiratory paralysis [Fatal]
  - Potentiating drug interaction [Unknown]
  - Off label use [Unknown]

NARRATIVE: CASE EVENT DATE: 20200801
